FAERS Safety Report 8611887-0 (Version None)
Quarter: 2012Q3

REPORT INFORMATION
  Report Type: 
  Country: None (occurrence: None)
  Receive Date: 20120822
  Receipt Date: 20120815
  Transmission Date: 20120928
  Serious: Yes (Death)
  Sender: FDA-Public Use
  Company Number: JP-BRISTOL-MYERS SQUIBB COMPANY-15071665

PATIENT
  Age: 71 Year
  Sex: Female
  Weight: 51 kg

DRUGS (5)
  1. PREDONINE [Concomitant]
     Dosage: TABS
     Route: 048
     Dates: start: 20100224, end: 20100325
  2. ALDACTONE [Concomitant]
     Route: 048
     Dates: start: 20100222, end: 20100325
  3. SPRYCEL [Suspect]
     Indication: CHRONIC MYELOID LEUKAEMIA
     Dosage: 100X1MG/D-25DEC2009-UNK 26DEC09-09JAN10:25MGX2TIMES/D 10JAN-25MAR10:50MGX2TIMES/D
     Route: 048
     Dates: start: 20091226, end: 20100325
  4. LASIX [Concomitant]
     Route: 048
     Dates: start: 20100222, end: 20100325
  5. FAMOTIDINE [Concomitant]
     Indication: PROPHYLAXIS
     Dosage: TABS
     Route: 048
     Dates: start: 20100224, end: 20100325

REACTIONS (2)
  - NEOPLASM MALIGNANT [None]
  - CARDIAC FAILURE [None]
